FAERS Safety Report 13808605 (Version 3)
Quarter: 2017Q3

REPORT INFORMATION
  Report Type: Report from Study
  Country: US (occurrence: US)
  Receive Date: 20170728
  Receipt Date: 20170919
  Transmission Date: 20171127
  Serious: Yes (Hospitalization, Other)
  Sender: FDA-Public Use
  Company Number: US-TEVA-792549USA

PATIENT
  Age: 56 Year
  Sex: Male

DRUGS (8)
  1. MESNA. [Concomitant]
     Active Substance: MESNA
     Route: 065
  2. VINCRISTINE [Concomitant]
     Active Substance: VINCRISTINE
     Route: 065
  3. METHOTREXATE. [Concomitant]
     Active Substance: METHOTREXATE
     Route: 065
  4. ACYCLOVIR. [Concomitant]
     Active Substance: ACYCLOVIR
     Route: 065
  5. CYCLOPHOPHAMIDE [Concomitant]
     Active Substance: CYCLOPHOSPHAMIDE
     Route: 065
  6. RASBURICASE [Concomitant]
     Active Substance: RASBURICASE
     Route: 065
  7. CLOZAPINE. [Suspect]
     Active Substance: CLOZAPINE
     Route: 048
  8. RITUXIMAB. [Concomitant]
     Active Substance: RITUXIMAB
     Route: 065

REACTIONS (3)
  - Hospitalisation [Unknown]
  - Granulocytopenia [Unknown]
  - Burkitt^s lymphoma [Recovering/Resolving]

NARRATIVE: CASE EVENT DATE: 20170710
